FAERS Safety Report 10544609 (Version 1)
Quarter: 2014Q4

REPORT INFORMATION
  Report Type: Spontaneous
  Country: GB (occurrence: None)
  Receive Date: 20141016
  Receipt Date: 20141016
  Transmission Date: 20150529
  Serious: Yes (Hospitalization)
  Sender: FDA-Public Use
  Company Number: 2013GMK007405

PATIENT
  Age: 74 Year
  Sex: Female

DRUGS (2)
  1. GABAPENTIN (GABAPENTIN) UNKNOWN [Suspect]
     Active Substance: GABAPENTIN
     Indication: NEURALGIA
     Route: 048
     Dates: start: 2012, end: 201304
  2. LERCANIDIPINE HYDROCHLORIDE (LERCANIDIPINE) UNKNOWN [Suspect]
     Active Substance: LERCANIDIPINE HYDROCHLORIDE
     Indication: HYPERTENSION

REACTIONS (2)
  - Dyspnoea [None]
  - Oedema peripheral [None]
